FAERS Safety Report 19014425 (Version 1)
Quarter: 2021Q1

REPORT INFORMATION
  Report Type: Spontaneous
  Country: DE (occurrence: DE)
  Receive Date: 20210316
  Receipt Date: 20210316
  Transmission Date: 20210420
  Serious: Yes (Hospitalization)
  Sender: FDA-Public Use
  Company Number: NVSC2021DE053323

PATIENT
  Age: 56 Year
  Sex: Female

DRUGS (1)
  1. RISPERIDONE. [Suspect]
     Active Substance: RISPERIDONE
     Indication: PRODUCT USED FOR UNKNOWN INDICATION
     Dosage: 1 MG, QD (1?0?0?0)
     Route: 065

REACTIONS (4)
  - General physical health deterioration [Unknown]
  - Nausea [Unknown]
  - Ileus [Unknown]
  - Vomiting [Unknown]
